FAERS Safety Report 4373120-8 (Version None)
Quarter: 2004Q2

REPORT INFORMATION
  Report Type: 
  Country: None (occurrence: None)
  Receive Date: 20040603
  Receipt Date: 20040519
  Transmission Date: 20050107
  Serious: Yes (Hospitalization, Other)
  Sender: FDA-Public Use
  Company Number: US_990827135

PATIENT
  Age: 69 Year
  Sex: Female
  Weight: 66 kg

DRUGS (11)
  1. HUMALOG [Suspect]
     Indication: DIABETES MELLITUS
     Dosage: 20 U/1 IN THE MORNING
     Dates: start: 19990101
  2. HUMULIN 70/30 [Suspect]
     Indication: DIABETES MELLITUS
     Dosage: 30 U DAY
  3. HUMULIN N [Suspect]
     Indication: DIABETES MELLITUS
     Dosage: 25 U/1 IN THE MORNING
     Dates: start: 19990101
  4. CORTISONE [Concomitant]
  5. NORVASC [Concomitant]
  6. WELLBUTRIN [Concomitant]
  7. DIAZEPAM [Concomitant]
  8. LORTAB [Concomitant]
  9. OXYCONTIN [Concomitant]
  10. PRILOSEC [Concomitant]
  11. MECLIZINE [Concomitant]

REACTIONS (10)
  - BLOOD GLUCOSE DECREASED [None]
  - BLOOD GLUCOSE FLUCTUATION [None]
  - BLOOD GLUCOSE INCREASED [None]
  - BODY HEIGHT DECREASED [None]
  - INTERVERTEBRAL DISC PROTRUSION [None]
  - LUNG NEOPLASM [None]
  - MEDICATION ERROR [None]
  - NERVOUSNESS [None]
  - SPINAL COLUMN STENOSIS [None]
  - TREMOR [None]
